FAERS Safety Report 7073819-9 (Version None)
Quarter: 2010Q4

REPORT INFORMATION
  Report Type: 
  Country: None (occurrence: None)
  Receive Date: 20101029
  Receipt Date: 20100819
  Transmission Date: 20110411
  Serious: No
  Sender: FDA-Public Use
  Company Number: A0876757A

PATIENT
  Age: 75 Year
  Sex: Female

DRUGS (8)
  1. ADVAIR DISKUS 100/50 [Suspect]
     Indication: EMPHYSEMA
     Dosage: 1PUFF TWICE PER DAY
     Route: 055
     Dates: start: 20040701, end: 20090801
  2. SPIRIVA [Concomitant]
  3. DUONEB [Concomitant]
  4. SIMVASTATIN [Concomitant]
  5. BONIVA [Concomitant]
  6. ASPIRIN [Concomitant]
  7. CENTRUM SILVER [Concomitant]
  8. OXYGEN [Concomitant]

REACTIONS (3)
  - BREAST PAIN [None]
  - DRUG INEFFECTIVE [None]
  - ILL-DEFINED DISORDER [None]
